FAERS Safety Report 4397581-3 (Version None)
Quarter: 2004Q3

REPORT INFORMATION
  Report Type: 
  Country: None (occurrence: None)
  Receive Date: 20040709
  Receipt Date: 20040628
  Transmission Date: 20050211
  Serious: Yes (Death)
  Sender: FDA-Public Use
  Company Number: 2004AP03122

PATIENT
  Age: 18 Year
  Sex: Female

DRUGS (4)
  1. PULMICORT [Suspect]
     Indication: ASTHMA
     Dosage: 200 UG BID IH
     Route: 055
     Dates: start: 20040503
  2. PULMICORT [Suspect]
     Indication: CONDITION AGGRAVATED
     Dosage: 200 UG BID IH
     Route: 055
     Dates: start: 20040503
  3. VENTOLIN [Concomitant]
  4. AUGMENTIN DUO FORTE [Concomitant]

REACTIONS (1)
  - DYSPNOEA [None]
